FAERS Safety Report 20566449 (Version 2)
Quarter: 2024Q2

REPORT INFORMATION
  Report Type: Spontaneous
  Country: US (occurrence: US)
  Receive Date: 20220308
  Receipt Date: 20240508
  Transmission Date: 20240716
  Serious: Yes (Death, Life-Threatening, Other)
  Sender: FDA-Public Use
  Company Number: US-BAYER-2020-245905

PATIENT
  Age: 27 Year
  Sex: Female

DRUGS (24)
  1. FENTANYL CITRATE [Interacting]
     Active Substance: FENTANYL CITRATE
     Indication: Completed suicide
     Dosage: UNK
  2. ZZZQUIL NIGHTTIME SLEEP-AID [Interacting]
     Active Substance: DIPHENHYDRAMINE HYDROCHLORIDE
     Indication: Completed suicide
     Dosage: UNK
  3. ALPRAZOLAM [Interacting]
     Active Substance: ALPRAZOLAM
     Indication: Completed suicide
     Dosage: UNK
  4. ETIZOLAM [Interacting]
     Active Substance: ETIZOLAM
     Indication: Completed suicide
     Dosage: UNK
  5. AMPHETAMINE [Interacting]
     Active Substance: AMPHETAMINE
     Indication: Completed suicide
     Dosage: UNK
  6. NORDAZEPAM [Interacting]
     Active Substance: NORDAZEPAM
     Indication: Completed suicide
     Dosage: UNK
  7. METHAMPHETAMINE [Interacting]
     Active Substance: METHAMPHETAMINE
     Indication: Completed suicide
     Dosage: UNK
  8. CHATEAL [Concomitant]
     Active Substance: ETHINYL ESTRADIOL\LEVONORGESTREL
     Dosage: UNK
  9. ADEMETIONINE [Concomitant]
     Active Substance: ADEMETIONINE
     Dosage: UNK
  10. ONDANSETRON [Concomitant]
     Active Substance: ONDANSETRON
     Dosage: UNK
  11. ESCITALOPRAM [Concomitant]
     Active Substance: ESCITALOPRAM OXALATE
     Dosage: UNK
  12. BROMAZEPAM [Concomitant]
     Active Substance: BROMAZEPAM
     Dosage: UNK
  13. VICKS DAYQUIL [Concomitant]
     Active Substance: DEXTROMETHORPHAN HYDROBROMIDE\GUAIFENESIN
     Dosage: UNK
  14. STAY AWAKE [Concomitant]
     Active Substance: CAFFEINE
     Dosage: UNK
  15. INDERAL [Concomitant]
     Active Substance: PROPRANOLOL HYDROCHLORIDE
     Dosage: UNK
  16. WAL-SOM [Concomitant]
     Active Substance: DIPHENHYDRAMINE HYDROCHLORIDE
     Dosage: UNK
  17. VITAMIN D [Concomitant]
     Active Substance: VITAMIN D NOS
     Dosage: UNK
  18. ZEPAM [CLONAZEPAM] [Concomitant]
     Dosage: UNK
  19. DOXYCYCLINE [Concomitant]
     Active Substance: DOXYCYCLINE
     Dosage: UNK
  20. NYQUIL SEVERE COLD + FLU [Concomitant]
     Dosage: UNK
  21. IBUPROFEN [Concomitant]
     Active Substance: IBUPROFEN
     Dosage: UNK
  22. GAS RELIEF [Concomitant]
     Active Substance: DIMETHICONE
     Dosage: UNK
  23. MECLIZINE HYDROCHLORIDE [Concomitant]
     Active Substance: MECLIZINE HYDROCHLORIDE
     Indication: Flatulence
     Dosage: UNK
  24. FAMOTIDINE [Concomitant]
     Active Substance: FAMOTIDINE
     Indication: Flatulence
     Dosage: UNK

REACTIONS (4)
  - Drug interaction [Fatal]
  - Toxicity to various agents [Fatal]
  - Alcohol interaction [Fatal]
  - Overdose [Fatal]

NARRATIVE: CASE EVENT DATE: 20180801
